FAERS Safety Report 6138373-4 (Version None)
Quarter: 2009Q1

REPORT INFORMATION
  Report Type: 
  Country: None (occurrence: None)
  Receive Date: 20090327
  Receipt Date: 20090327
  Transmission Date: 20090719
  Serious: No
  Sender: FDA-Public Use
  Company Number: None

PATIENT
  Sex: Male
  Weight: 76.66 kg

DRUGS (15)
  1. CYCLOPHOSPHAMIDE [Suspect]
     Dosage: 1402 MG
  2. DOXIL [Suspect]
     Dosage: 75 MG
  3. PREDNISONE [Suspect]
     Dosage: 500 MG
     Dates: start: 20090204
  4. RITUXIMAB (MOAB C2B8 ANTI CD2O, CHIMERIC) [Suspect]
     Dosage: 701 MG
  5. VINCRISTINE SULFATE [Suspect]
     Dosage: 2 MG
  6. ACYCLOVIR [Concomitant]
  7. AMLODIPINE BESYLATE [Concomitant]
  8. AZYTROMYCIN [Concomitant]
  9. DIAMINO-DIPHENYL SULFONE [Concomitant]
  10. EMTRICITABINE [Concomitant]
  11. ENALAPRIL MALEATE [Concomitant]
  12. FLUCONAZOLE [Concomitant]
  13. LEVETIRACETAM [Concomitant]
  14. LOPINAVIR [Concomitant]
  15. TENOFOVIR [Concomitant]

REACTIONS (1)
  - NEUTROPENIA [None]
